FAERS Safety Report 14806248 (Version 1)
Quarter: 2018Q2

REPORT INFORMATION
  Report Type: Spontaneous
  Country: US (occurrence: US)
  Receive Date: 20180425
  Receipt Date: 20180425
  Transmission Date: 20180711
  Serious: No
  Sender: FDA-Public Use
  Company Number: US-UPSHER-SMITH LABORATORIES, LLC-2017USL00070

PATIENT
  Age: 28 Year
  Sex: Female
  Weight: 51.7 kg

DRUGS (8)
  1. HAIR GROWTH SUPPLEMENT [Concomitant]
  2. TOPIRAMATE EXTENDED RELEASE [Suspect]
     Active Substance: TOPIRAMATE
     Indication: MIGRAINE
     Dosage: 50 MG, 1X/DAY
     Route: 048
     Dates: start: 201705, end: 20170605
  3. QUDEXY XR [Suspect]
     Active Substance: TOPIRAMATE
     Indication: MIGRAINE
     Dosage: 25 MG, 1X/DAY
     Route: 048
     Dates: start: 201612, end: 201705
  4. CLARITIN [Concomitant]
     Active Substance: LORATADINE
  5. ^BIRTH CONTROL SUPPLEMENTS^ [Concomitant]
  6. QUDEXY XR [Suspect]
     Active Substance: TOPIRAMATE
     Indication: MIGRAINE
     Dosage: 50 MG, 1X/DAY
     Route: 048
     Dates: end: 201705
  7. QUDEXY XR [Suspect]
     Active Substance: TOPIRAMATE
     Dosage: 25 MG, 1X/DAY FOR A TOTAL OF 75 MG DAILY
     Route: 048
     Dates: end: 2017
  8. ^COLLAGEN SUPPLEMENTS^ [Concomitant]

REACTIONS (4)
  - Lethargy [Not Recovered/Not Resolved]
  - Blood pressure systolic decreased [Unknown]
  - Somnolence [Not Recovered/Not Resolved]
  - Paraesthesia [Not Recovered/Not Resolved]

NARRATIVE: CASE EVENT DATE: 201612
